FAERS Safety Report 22169406 (Version 1)
Quarter: 2023Q2

REPORT INFORMATION
  Report Type: Spontaneous
  Country: TR (occurrence: TR)
  Receive Date: 20230404
  Receipt Date: 20230404
  Transmission Date: 20230721
  Serious: Yes (Hospitalization)
  Sender: FDA-Public Use
  Company Number: TR-ALKEM LABORATORIES LIMITED-TR-ALKEM-2022-12514

PATIENT
  Age: 4 Year
  Sex: Female

DRUGS (1)
  1. COLCHICINE [Suspect]
     Active Substance: COLCHICINE
     Indication: Product used for unknown indication
     Dosage: 0.6 MILLIGRAM/KILOGRAM
     Route: 048

REACTIONS (3)
  - Vomiting [Recovered/Resolved]
  - Toxicity to various agents [Recovered/Resolved]
  - Accidental overdose [Unknown]
